FAERS Safety Report 11538911 (Version 1)
Quarter: 2015Q3

REPORT INFORMATION
  Report Type: Spontaneous
  Country: US (occurrence: None)
  Receive Date: 20150922
  Receipt Date: 20150922
  Transmission Date: 20151125
  Serious: Yes (Other)
  Sender: FDA-Public Use
  Company Number: None

PATIENT
  Age: 70 Year
  Sex: Male
  Weight: 108.86 kg

DRUGS (23)
  1. IBUPROFEN. [Concomitant]
     Active Substance: IBUPROFEN
  2. HYDROXYCHLOROQUINE METHOTREXATE [Concomitant]
  3. VOLTAREN [Concomitant]
     Active Substance: DICLOFENAC SODIUM
  4. DIGOXIN. [Concomitant]
     Active Substance: DIGOXIN
  5. CARTIA XT [Concomitant]
     Active Substance: DILTIAZEM HYDROCHLORIDE
  6. KINERET [Suspect]
     Active Substance: ANAKINRA
     Indication: RHEUMATOID ARTHRITIS
     Dosage: ONE INJECTION PER DAY ONCE DAILY GIVEN INTO/UNDER THE SKIN
     Dates: start: 20150826, end: 20150904
  7. LASIX [Concomitant]
     Active Substance: FUROSEMIDE
  8. FARXIGA [Concomitant]
     Active Substance: DAPAGLIFLOZIN PROPANEDIOL
  9. FLUTICASONE [Concomitant]
     Active Substance: FLUTICASONE\FLUTICASONE PROPIONATE
  10. CIALIS [Concomitant]
     Active Substance: TADALAFIL
  11. POTASSIUM CL [Concomitant]
     Active Substance: POTASSIUM CHLORIDE
  12. HUMAN CHORIONIC GONADOTROPIN [Concomitant]
     Active Substance: GONADOTROPHIN, CHORIONIC
  13. TRAMADOL HCL [Concomitant]
     Active Substance: TRAMADOL HYDROCHLORIDE
  14. LIDODERM [Concomitant]
     Active Substance: LIDOCAINE
  15. RAYOS [Concomitant]
     Active Substance: PREDNISONE
  16. TOCILIZUMAB [Suspect]
     Active Substance: TOCILIZUMAB
     Indication: RHEUMATOID ARTHRITIS
     Dosage: ONCE PER WEEK GIVEN INTO/UNDER THE SKIN
  17. LEVOTHYROXINE. [Concomitant]
     Active Substance: LEVOTHYROXINE
  18. BYDUREON [Concomitant]
     Active Substance: EXENATIDE
  19. METFORMIN [Concomitant]
     Active Substance: METFORMIN HYDROCHLORIDE
  20. ANDROGEL [Concomitant]
     Active Substance: TESTOSTERONE
  21. GLYBRIDE [Concomitant]
  22. FOLIC ACID. [Concomitant]
     Active Substance: FOLIC ACID
  23. ELIQUIS [Concomitant]
     Active Substance: APIXABAN

REACTIONS (3)
  - Injection site swelling [None]
  - Injection site rash [None]
  - Injection site pain [None]

NARRATIVE: CASE EVENT DATE: 20150826
